FAERS Safety Report 8625953-7 (Version None)
Quarter: 2012Q3

REPORT INFORMATION
  Report Type: 
  Country: None (occurrence: None)
  Receive Date: 20120827
  Receipt Date: 20120813
  Transmission Date: 20120928
  Serious: Yes (Other)
  Sender: FDA-Public Use
  Company Number: FR-ROCHE-1106532

PATIENT
  Age: 73 Year
  Sex: Male

DRUGS (4)
  1. LEUCOVORIN CALCIUM [Concomitant]
     Indication: COLON CANCER
     Route: 065
  2. FLUOROURACIL [Concomitant]
     Route: 065
  3. BEVACIZUMAB [Suspect]
     Indication: COLON CANCER
     Dosage: 12 CYCLES
  4. OXALIPLATIN [Concomitant]
     Indication: COLON CANCER
     Route: 065

REACTIONS (1)
  - THROMBOCYTOPENIA [None]
